FAERS Safety Report 6805294-0 (Version None)
Quarter: 2010Q2

REPORT INFORMATION
  Report Type: 
  Country: None (occurrence: None)
  Receive Date: 20100628
  Receipt Date: 20071205
  Transmission Date: 20101027
  Serious: No
  Sender: FDA-Public Use
  Company Number: US-PFIZER INC-2007043410

PATIENT
  Sex: Male

DRUGS (2)
  1. XALATAN [Suspect]
  2. LATANOPROST DEVICE DELIVERY AID [Suspect]

REACTIONS (2)
  - DEVICE INEFFECTIVE [None]
  - IRIS HYPERPIGMENTATION [None]
